FAERS Safety Report 16747034 (Version 1)
Quarter: 2019Q3

REPORT INFORMATION
  Report Type: Spontaneous
  Country: US (occurrence: US)
  Receive Date: 20190827
  Receipt Date: 20190827
  Transmission Date: 20191005
  Serious: No
  Sender: FDA-Public Use
  Company Number: US-SA-2019SA236621

PATIENT
  Sex: Female

DRUGS (2)
  1. DUPILUMAB [Concomitant]
     Active Substance: DUPILUMAB
  2. KEVZARA [Suspect]
     Active Substance: SARILUMAB

REACTIONS (1)
  - Hypersensitivity [Unknown]
